FAERS Safety Report 18882043 (Version 1)
Quarter: 2021Q1

REPORT INFORMATION
  Report Type: Spontaneous
  Country: FI (occurrence: FI)
  Receive Date: 20210211
  Receipt Date: 20210211
  Transmission Date: 20210420
  Serious: Yes (Hospitalization)
  Sender: FDA-Public Use
  Company Number: FI-FRESENIUS KABI-FK202101403

PATIENT
  Age: 49 Year
  Sex: Female

DRUGS (5)
  1. FLUOROURACIL. [Suspect]
     Active Substance: FLUOROURACIL
     Indication: DUCTAL ADENOCARCINOMA OF PANCREAS
     Dosage: 5?FLUOROURACIL (FU, ACCORD) ?THE LAST DOSES OF ONIVYDE WITH 5?FU/LEUCOVORIN PRIOR TO THE EVENT ONSET
     Route: 042
     Dates: start: 20200923, end: 20201103
  2. IRINOTECAN MONOHYDROCHLORIDE TRIHYDRATE [Suspect]
     Active Substance: IRINOTECAN HYDROCHLORIDE
     Indication: DUCTAL ADENOCARCINOMA OF PANCREAS
     Dosage: ONIVYDE (IRINOTECAN NANOLIPOSOMAL, SERVIER)
     Route: 042
     Dates: start: 20200923
  3. IRINOTECAN MONOHYDROCHLORIDE TRIHYDRATE [Suspect]
     Active Substance: IRINOTECAN HYDROCHLORIDE
     Dosage: ONIVYDE (IRINOTECAN NANOLIPOSOMAL, SERVIER)
     Route: 042
  4. IRINOTECAN MONOHYDROCHLORIDE TRIHYDRATE [Suspect]
     Active Substance: IRINOTECAN HYDROCHLORIDE
     Dosage: ONIVYDE (IRINOTECAN NANOLIPOSOMAL, SERVIER)?(DOSAGE TEXT: THE LAST DOSES OF ONIVYDE WITH 5?FU/LEUCOV
     Route: 042
     Dates: end: 20201103
  5. LEUCOVORIN. [Suspect]
     Active Substance: LEUCOVORIN
     Indication: DUCTAL ADENOCARCINOMA OF PANCREAS
     Dosage: CALCIUMFOLINAT FRESENIUS KABI 10 MG/ML?THE LAST DOSES OF ONIVYDE WITH 5?FU/LEUCOVORIN PRIOR TO THE E
     Route: 042
     Dates: start: 20200923, end: 20201103

REACTIONS (1)
  - Neutropenic infection [Recovered/Resolved]

NARRATIVE: CASE EVENT DATE: 20201116
